FAERS Safety Report 16534385 (Version 5)
Quarter: 2019Q4

REPORT INFORMATION
  Report Type: Report from Study
  Country: DE (occurrence: DE)
  Receive Date: 20190705
  Receipt Date: 20191021
  Transmission Date: 20200122
  Serious: Yes (Other)
  Sender: FDA-Public Use
  Company Number: PHHY2018DE039269

PATIENT
  Sex: Female
  Weight: 42 kg

DRUGS (14)
  1. DEFERASIROX. [Suspect]
     Active Substance: DEFERASIROX
     Dosage: 12.85 MG/KG BODYWEIGHT /DAY (= 1X 180MG TABLET + 1X 360MG TABLET)
     Route: 065
     Dates: start: 20171220, end: 20180410
  2. DEFERASIROX. [Suspect]
     Active Substance: DEFERASIROX
     Dosage: 8.6 MG/KG BODYWEIGHT /DAY (= 1X 360MG TABLET)
     Route: 065
     Dates: start: 20180602, end: 20180917
  3. CICLOSPORIN [Suspect]
     Active Substance: CYCLOSPORINE
     Dosage: 1 ML, BID (240 MG)
     Route: 065
     Dates: start: 20170704, end: 20170731
  4. DEFERASIROX. [Suspect]
     Active Substance: DEFERASIROX
     Indication: IRON OVERLOAD
     Dosage: 8.6 MG/KG  BODYWEIGHT /DAY (180MG)
     Route: 065
     Dates: start: 20171026, end: 20171219
  5. CICLOSPORIN [Suspect]
     Active Substance: CYCLOSPORINE
     Dosage: 2X 1.3 ML (= 260 MG PER DAY)
     Route: 065
     Dates: start: 20171026, end: 20180124
  6. CICLOSPORIN [Suspect]
     Active Substance: CYCLOSPORINE
     Dosage: 2X 1.0 ML (= 200 MG PER DAY)
     Route: 065
     Dates: start: 20181112
  7. CICLOSPORIN [Suspect]
     Active Substance: CYCLOSPORINE
     Dosage: 2X 1.2 ML (= 240 MG PER DAY)
     Route: 065
     Dates: start: 20170918, end: 20171025
  8. CICLOSPORIN [Suspect]
     Active Substance: CYCLOSPORINE
     Dosage: 2X 1.5 ML (= 290 MG PER DAY)
     Route: 065
     Dates: start: 20180424, end: 20180704
  9. CICLOSPORIN [Suspect]
     Active Substance: CYCLOSPORINE
     Dosage: 2X 1.4 ML (= 280 MG PER DAY)
     Route: 065
     Dates: start: 20180705, end: 20180913
  10. CICLOSPORIN [Suspect]
     Active Substance: CYCLOSPORINE
     Indication: APLASTIC ANAEMIA
     Dosage: 1 ML, BID (200 MG)
     Route: 065
     Dates: start: 20170614, end: 20170626
  11. CICLOSPORIN [Suspect]
     Active Substance: CYCLOSPORINE
     Dosage: 1 ML, BID (220 MG)
     Route: 065
     Dates: start: 20170627, end: 20170703
  12. CICLOSPORIN [Suspect]
     Active Substance: CYCLOSPORINE
     Dosage: 1 ML, BID (260 MG)
     Route: 065
     Dates: start: 20170801, end: 20170917
  13. CICLOSPORIN [Suspect]
     Active Substance: CYCLOSPORINE
     Dosage: 2X 1.6 ML (= 320 MG PER DAY)
     Route: 065
     Dates: start: 20180914, end: 20181104
  14. CICLOSPORIN [Suspect]
     Active Substance: CYCLOSPORINE
     Dosage: 2X 1.4 ML (= 280 MG PER DAY)
     Route: 065
     Dates: start: 20180125, end: 20180423

REACTIONS (3)
  - Blood creatinine increased [Recovering/Resolving]
  - Renal failure [Not Recovered/Not Resolved]
  - Pyrexia [Recovered/Resolved]

NARRATIVE: CASE EVENT DATE: 20171204
